FAERS Safety Report 14549375 (Version 7)
Quarter: 2019Q1

REPORT INFORMATION
  Report Type: Spontaneous
  Country: PL (occurrence: PL)
  Receive Date: 20180219
  Receipt Date: 20190226
  Transmission Date: 20190417
  Serious: Yes (Hospitalization, Other)
  Sender: FDA-Public Use
  Company Number: PL-ACCORD-063670

PATIENT
  Age: 85 Year
  Sex: Female

DRUGS (8)
  1. MIANSERIN [Interacting]
     Active Substance: MIANSERIN
     Dosage: AT BEDTIME
  2. TORASEMIDE [Interacting]
     Active Substance: TORSEMIDE
     Dosage: 5 MG IN THE MORNING
  3. DONEPEZIL/DONEPEZIL HYDROCHLORIDE [Suspect]
     Active Substance: DONEPEZIL HYDROCHLORIDE
     Dosage: IN THE MORNING
  4. CARVEDILOL/CARVEDILOL HYDROCHLODRIDE [Interacting]
     Active Substance: CARVEDILOL HYDROCHLORIDE
     Dosage: 6.25 MG IN THE MORNING
  5. ZOFENOPRIL/ZOFENOPRIL CALCIUM [Interacting]
     Active Substance: ZOFENOPRIL
     Dosage: 7.5 MG IN THE MORNING
  6. QUETIAPINE. [Interacting]
     Active Substance: QUETIAPINE
     Dosage: 50 MG BEFORE BEDTIME
  7. ATORVASTATIN/ATORVASTATIN CALCIUM [Interacting]
     Active Substance: ATORVASTATIN CALCIUM
     Dosage: 20 MG AT BEDTIME
  8. SERTRALINE [Interacting]
     Active Substance: SERTRALINE HYDROCHLORIDE
     Dosage: 100 MG IN THE MORNING

REACTIONS (16)
  - Hyperhidrosis [Recovered/Resolved]
  - Abdominal pain [Recovered/Resolved]
  - Somnolence [Recovered/Resolved]
  - Liver disorder [Recovered/Resolved]
  - Nausea [Recovered/Resolved]
  - Muscle spasms [Recovered/Resolved]
  - Loss of consciousness [Recovered/Resolved]
  - Musculoskeletal chest pain [Recovering/Resolving]
  - Bradycardia [Recovered/Resolved]
  - Herbal interaction [Unknown]
  - Hepatitis [Recovered/Resolved]
  - Hypokalaemia [Recovered/Resolved]
  - Muscle contracture [Recovered/Resolved]
  - Syncope [Recovered/Resolved]
  - Dry mouth [Recovered/Resolved]
  - Diarrhoea [Recovered/Resolved]
